FAERS Safety Report 10402504 (Version 1)
Quarter: 2014Q3

REPORT INFORMATION
  Report Type: Spontaneous
  Country: US (occurrence: None)
  Receive Date: 20140821
  Receipt Date: 20140821
  Transmission Date: 20150326
  Serious: Yes (Death)
  Sender: FDA-Public Use
  Company Number: None

PATIENT
  Age: 72 Year
  Sex: Male
  Weight: 72 kg

DRUGS (6)
  1. PRADAXA [Suspect]
     Active Substance: DABIGATRAN ETEXILATE MESYLATE
     Indication: ATRIAL FIBRILLATION
     Route: 048
  2. DIGOXIN. [Concomitant]
     Active Substance: DIGOXIN
  3. METOPROLOL TARTRATE. [Concomitant]
     Active Substance: METOPROLOL TARTRATE
  4. GABAPENTIN. [Concomitant]
     Active Substance: GABAPENTIN
  5. REQUIP [Concomitant]
     Active Substance: ROPINIROLE HYDROCHLORIDE
  6. CITALOPRAM [Concomitant]
     Active Substance: CITALOPRAM HYDROBROMIDE

REACTIONS (11)
  - Haematemesis [None]
  - Atrial fibrillation [None]
  - Haematochezia [None]
  - General physical health deterioration [None]
  - Asthenia [None]
  - Faeces discoloured [None]
  - Supraventricular tachycardia [None]
  - Melaena [None]
  - Hallucination [None]
  - Duodenal ulcer [None]
  - Mental status changes [None]

NARRATIVE: CASE EVENT DATE: 20140617
